FAERS Safety Report 16417584 (Version 2)
Quarter: 2019Q3

REPORT INFORMATION
  Report Type: Spontaneous
  Country: JP (occurrence: JP)
  Receive Date: 20190611
  Receipt Date: 20190702
  Transmission Date: 20191004
  Serious: Yes (Hospitalization, Other)
  Sender: FDA-Public Use
  Company Number: JP-PFIZER INC-2019150102

PATIENT
  Age: 81 Year
  Sex: Male

DRUGS (2)
  1. ANAEMETRO [Suspect]
     Active Substance: METRONIDAZOLE
     Indication: ABDOMINAL ABSCESS
     Dosage: 500 MG, 4X/DAY
     Route: 041
     Dates: start: 20180324, end: 20180502
  2. ANAEMETRO [Suspect]
     Active Substance: METRONIDAZOLE
     Indication: BACTERIAL INFECTION

REACTIONS (5)
  - Toxic encephalopathy [Recovered/Resolved]
  - Alanine aminotransferase increased [Recovered/Resolved]
  - C-reactive protein increased [Recovered/Resolved]
  - Aspartate aminotransferase increased [Recovered/Resolved]
  - Neuropathy peripheral [Recovered/Resolved with Sequelae]

NARRATIVE: CASE EVENT DATE: 20180425
